FAERS Safety Report 6674580-X (Version None)
Quarter: 2010Q2

REPORT INFORMATION
  Report Type: 
  Country: None (occurrence: None)
  Receive Date: 20100409
  Receipt Date: 20100407
  Transmission Date: 20101027
  Serious: Yes (Death)
  Sender: FDA-Public Use
  Company Number: IT-ROCHE-440104

PATIENT
  Sex: Male
  Weight: 73 kg

DRUGS (3)
  1. BEVACIZUMAB [Suspect]
     Dosage: 7,5 MG/KG ON DAY 1 EVERY 3 WEEKS, DATE OF LAST DOSE PRIOR TO SAE: 30 JAN 2006
     Route: 042
     Dates: start: 20051108
  2. CAPECITABINE [Suspect]
     Dosage: 1000 MG/M2 TWICE DAILY ON DAYS 2-15 EVERY 3 WEEKS, DATE OF LAST DOSE PRIOR TO SAE: 14 FEBRUARY 2006
     Route: 042
     Dates: start: 20051108
  3. IRINOTECAN HYDROCHLORIDE [Suspect]
     Dosage: 240 MG/M2 ON DAY 1 EVERY 3 WEEKS, DATE OF LAST DOSE PRIOR TO SAE: 30 JAN 2006
     Route: 042
     Dates: start: 20051108

REACTIONS (1)
  - DISSEMINATED INTRAVASCULAR COAGULATION [None]
